FAERS Safety Report 19419965 (Version 2)
Quarter: 2023Q1

REPORT INFORMATION
  Report Type: Spontaneous
  Country: US (occurrence: US)
  Receive Date: 20210616
  Receipt Date: 20230323
  Transmission Date: 20230418
  Serious: Yes (Hospitalization, Other)
  Sender: FDA-Public Use
  Company Number: US-LUNDBECK-DKLU3034298

PATIENT
  Age: 9 Year
  Sex: Male

DRUGS (5)
  1. SABRIL [Suspect]
     Active Substance: VIGABATRIN
     Indication: Partial seizures
     Dosage: OVERDOSE: 7000MG DAILY
     Route: 048
     Dates: start: 201603
  2. SABRIL [Suspect]
     Active Substance: VIGABATRIN
     Indication: Focal dyscognitive seizures
     Dosage: OVERDOSE: 7000MG DAILY
     Route: 048
     Dates: start: 202105
  3. SABRIL [Suspect]
     Active Substance: VIGABATRIN
     Indication: Epilepsy
  4. SABRIL [Suspect]
     Active Substance: VIGABATRIN
     Indication: Epilepsy
  5. SABRIL [Suspect]
     Active Substance: VIGABATRIN
     Indication: Tuberous sclerosis complex

REACTIONS (4)
  - Seizure [Not Recovered/Not Resolved]
  - Drug withdrawal convulsions [Unknown]
  - Product dose omission issue [Unknown]
  - Prescribed overdose [Unknown]
